FAERS Safety Report 6656376-8 (Version None)
Quarter: 2010Q1

REPORT INFORMATION
  Report Type: 
  Country: None (occurrence: None)
  Receive Date: 20100324
  Receipt Date: 20100308
  Transmission Date: 20100710
  Serious: Yes (Hospitalization)
  Sender: FDA-Public Use
  Company Number: 1000012317

PATIENT
  Age: 64 Year
  Sex: Male
  Weight: 85 kg

DRUGS (6)
  1. MILNACIPRAN (MILNACIPRAN HYDROCHLORIDE) (CAPSULES) [Suspect]
     Indication: DEPRESSION
     Dosage: 25 MG (25 MG, 1 IN 1 D), ORAL; 50 MG (25 MG, 2 IN 1 D), ORAL
     Route: 048
     Dates: start: 20081001, end: 20080101
  2. MILNACIPRAN (MILNACIPRAN HYDROCHLORIDE) (CAPSULES) [Suspect]
     Indication: DEPRESSION
     Dosage: 25 MG (25 MG, 1 IN 1 D), ORAL; 50 MG (25 MG, 2 IN 1 D), ORAL
     Route: 048
     Dates: start: 20090101
  3. EDEX [Concomitant]
  4. OMEXEL [Concomitant]
  5. VITAMIN C [Concomitant]
  6. SPIRIVA [Concomitant]

REACTIONS (7)
  - ASTHENIA [None]
  - BENIGN PROSTATIC HYPERPLASIA [None]
  - GYNAECOMASTIA [None]
  - HAEMATURIA [None]
  - RENAL CYST [None]
  - SECONDARY HYPOGONADISM [None]
  - TESTICULAR HYPERTROPHY [None]
